FAERS Safety Report 25518691 (Version 2)
Quarter: 2025Q3

REPORT INFORMATION
  Report Type: Spontaneous
  Country: JP (occurrence: JP)
  Receive Date: 20250704
  Receipt Date: 20250812
  Transmission Date: 20251021
  Serious: Yes (Hospitalization)
  Sender: ROCHE
  Company Number: JP-CHUGAI-2025020568

PATIENT
  Age: 82 Year
  Sex: Male

DRUGS (3)
  1. ACTEMRA [Suspect]
     Active Substance: TOCILIZUMAB
     Indication: Still^s disease
     Route: 065
  2. PREDNISOLONE [Concomitant]
     Active Substance: PREDNISOLONE
     Indication: Still^s disease
     Route: 065
  3. RUXOLITINIB [Concomitant]
     Active Substance: RUXOLITINIB

REACTIONS (4)
  - Scleritis [Unknown]
  - Acute febrile neutrophilic dermatosis [Unknown]
  - Colitis [Unknown]
  - Organising pneumonia [Unknown]
